FAERS Safety Report 17241903 (Version 1)
Quarter: 2020Q1

REPORT INFORMATION
  Report Type: Spontaneous
  Country: US (occurrence: US)
  Receive Date: 20200106
  Receipt Date: 20200106
  Transmission Date: 20200409
  Serious: No
  Sender: FDA-Public Use
  Company Number: None

PATIENT
  Age: 29 Year
  Sex: Female
  Weight: 63 kg

DRUGS (2)
  1. IBUPROFEN TABLETS 200MG, CVS HEALTH, NDC 59779060493 [Suspect]
     Active Substance: IBUPROFEN
     Indication: PAIN
     Dosage: ?          QUANTITY:1000 TABLET(S);OTHER ROUTE:PO, PRN?
     Dates: start: 20180531
  2. IBUPROFEN TABLETS 200MG, CVS HEALTH, NDC 59779060493 [Suspect]
     Active Substance: IBUPROFEN
     Indication: DYSMENORRHOEA
     Dosage: ?          QUANTITY:1000 TABLET(S);OTHER ROUTE:PO, PRN?
     Dates: start: 20180531

REACTIONS (3)
  - Inadequate analgesia [None]
  - Therapeutic product effect decreased [None]
  - Product substitution issue [None]

NARRATIVE: CASE EVENT DATE: 20200102
